FAERS Safety Report 7480976-9 (Version None)
Quarter: 2011Q2

REPORT INFORMATION
  Report Type: 
  Country: None (occurrence: None)
  Receive Date: 20110512
  Receipt Date: 20110512
  Transmission Date: 20111010
  Serious: Yes (Life-Threatening)
  Sender: FDA-Public Use
  Company Number: None

PATIENT
  Sex: Female
  Weight: 63.5036 kg

DRUGS (2)
  1. PULMICORT FLEXHALER [Suspect]
     Indication: MULTIPLE ALLERGIES
     Dosage: 180 MG. 1 PUFF 2 TIMES MOUTH
     Route: 048
     Dates: start: 20110420
  2. PULMICORT FLEXHALER [Suspect]
     Indication: ASTHMA
     Dosage: 180 MG. 1 PUFF 2 TIMES MOUTH
     Route: 048
     Dates: start: 20110420

REACTIONS (2)
  - ARTHRALGIA [None]
  - DYSPNOEA [None]
